FAERS Safety Report 6974314-5 (Version None)
Quarter: 2010Q3

REPORT INFORMATION
  Report Type: 
  Country: None (occurrence: None)
  Receive Date: 20100909
  Receipt Date: 20100826
  Transmission Date: 20110219
  Serious: Yes (Other)
  Sender: FDA-Public Use
  Company Number: PHEH2008US01026

PATIENT
  Sex: Male

DRUGS (31)
  1. ELIDEL [Suspect]
     Indication: ECZEMA
     Route: 061
     Dates: start: 20030101
  2. TACROLIMUS [Concomitant]
  3. SERTRALINE HYDROCHLORIDE [Concomitant]
     Route: 048
  4. INFLUENZA VACCINE [Concomitant]
  5. CHEMOTHERAPEUTICS NOS [Concomitant]
  6. RADIATION THERAPY [Concomitant]
     Dosage: UNK
     Dates: start: 20050913, end: 20051101
  7. TRIAMCINOLONE [Concomitant]
  8. TYLENOL W/ CODEINE NO. 3 [Concomitant]
  9. IBUPROFEN [Concomitant]
  10. CLOBETASOL PROPIONATE [Concomitant]
  11. FLUOCINONIDE [Concomitant]
  12. DOXEPIN HCL [Concomitant]
  13. RABEPRAZOLE SODIUM [Concomitant]
  14. FEXOFENADINE HCL [Concomitant]
  15. HYDROCORTISONE CREAM (B.P.C.,B.N.F.) [Concomitant]
  16. HYDROCODONE BITARTRATE AND ACETAMINOPHEN [Concomitant]
  17. NAPROXEN [Concomitant]
  18. OLOPATADINE [Concomitant]
  19. VINCRISTINE [Concomitant]
  20. BLEOMYCIN SULFATE [Concomitant]
  21. KYTRIL [Concomitant]
  22. DECADRON [Concomitant]
  23. PROTOPIC [Concomitant]
  24. TAC [Concomitant]
  25. ALLEGRA [Concomitant]
  26. DOXYCYCLINE [Concomitant]
  27. FLONASE [Concomitant]
  28. NITROGEN MUSTARD [Concomitant]
  29. BENADRYL [Concomitant]
  30. DOXORUBICIN HCL [Concomitant]
  31. ETOPOSIDE [Concomitant]

REACTIONS (34)
  - AMNESIA [None]
  - BIOPSY LYMPH GLAND [None]
  - BLOOD GLUCOSE INCREASED [None]
  - CHEST PAIN [None]
  - CONFUSIONAL STATE [None]
  - CORNEAL ABRASION [None]
  - DERMATITIS [None]
  - DISTURBANCE IN ATTENTION [None]
  - DYSPNOEA [None]
  - EYE INJURY [None]
  - FATIGUE [None]
  - FOREIGN BODY IN EYE [None]
  - FRACTURE [None]
  - HEADACHE [None]
  - HODGKIN'S DISEASE [None]
  - HYPOAESTHESIA [None]
  - JOINT DISLOCATION [None]
  - LYMPHADENECTOMY [None]
  - LYMPHADENOPATHY [None]
  - MALAISE [None]
  - MENTAL STATUS CHANGES [None]
  - MUSCULAR WEAKNESS [None]
  - NECROSIS [None]
  - NEUROPATHY PERIPHERAL [None]
  - NODULE [None]
  - OESOPHAGITIS [None]
  - PAINFUL RESPIRATION [None]
  - PARAESTHESIA [None]
  - PRURITUS [None]
  - RASH [None]
  - SINUS HEADACHE [None]
  - SOMNOLENCE [None]
  - WEIGHT DECREASED [None]
  - WHITE BLOOD CELL COUNT DECREASED [None]
